FAERS Safety Report 5959907-6 (Version None)
Quarter: 2008Q4

REPORT INFORMATION
  Report Type: 
  Country: None (occurrence: None)
  Receive Date: 20081119
  Receipt Date: 20081119
  Transmission Date: 20090506
  Serious: Yes (Hospitalization)
  Sender: FDA-Public Use
  Company Number: None

PATIENT
  Age: 84 Year
  Sex: Male
  Weight: 74.8 kg

DRUGS (9)
  1. WARFARIN SODIUM [Suspect]
     Indication: ARRHYTHMIA PROPHYLAXIS
     Dosage: 5MG PO DAILY
     Route: 048
  2. WARFARIN SODIUM [Suspect]
     Indication: DEEP VEIN THROMBOSIS
     Dosage: 5MG PO DAILY
     Route: 048
  3. COLACE [Concomitant]
  4. LOPRESSOR [Concomitant]
  5. MULTI-VITAMIN [Concomitant]
  6. RAMIPRIL [Concomitant]
  7. ATORVASTATIN CALCIUM [Concomitant]
  8. DORZOLAMIDE [Concomitant]
  9. MAALOX [Concomitant]

REACTIONS (9)
  - BLOOD PRESSURE DECREASED [None]
  - DYSPNOEA [None]
  - FEMUR FRACTURE [None]
  - GASTROINTESTINAL HAEMORRHAGE [None]
  - HAEMATOCHEZIA [None]
  - HAEMOGLOBIN DECREASED [None]
  - HYPERHIDROSIS [None]
  - HYPOTENSION [None]
  - INTERNATIONAL NORMALISED RATIO INCREASED [None]
